FAERS Safety Report 5443072-8 (Version None)
Quarter: 2007Q3

REPORT INFORMATION
  Report Type: 
  Country: None (occurrence: None)
  Receive Date: 20070905
  Receipt Date: 20070829
  Transmission Date: 20080115
  Serious: Yes (Hospitalization)
  Sender: FDA-Public Use
  Company Number: US-ASTRAZENECA-2007UW20655

PATIENT
  Age: 75 Year
  Sex: Male

DRUGS (3)
  1. ARIMIDEX [Suspect]
     Route: 048
     Dates: end: 20070824
  2. ZOLADEX [Suspect]
     Route: 030
     Dates: start: 20070801
  3. ANDROGEL [Suspect]
     Indication: INSULIN RESISTANCE

REACTIONS (2)
  - ATRIAL FIBRILLATION [None]
  - TACHYCARDIA [None]
